FAERS Safety Report 22745426 (Version 4)
Quarter: 2024Q3

REPORT INFORMATION
  Report Type: Report from Study
  Country: DE (occurrence: DE)
  Receive Date: 20230725
  Receipt Date: 20240916
  Transmission Date: 20241017
  Serious: Yes (Other)
  Sender: ROCHE
  Company Number: DE-ROCHE-2857724

PATIENT
  Age: 42 Year
  Sex: Female

DRUGS (9)
  1. OCREVUS [Suspect]
     Active Substance: OCRELIZUMAB
     Indication: Relapsing-remitting multiple sclerosis
     Route: 042
     Dates: start: 20210318
  2. OCREVUS [Suspect]
     Active Substance: OCRELIZUMAB
     Route: 042
  3. OCREVUS [Suspect]
     Active Substance: OCRELIZUMAB
     Route: 042
     Dates: end: 20220902
  4. COMIRNATY (TOZINAMERAN) [Suspect]
     Active Substance: TOZINAMERAN
     Indication: Product used for unknown indication
     Route: 065
  5. DALFAMPRIDINE [Concomitant]
     Active Substance: DALFAMPRIDINE
  6. NABIXIMOLS [Concomitant]
     Active Substance: NABIXIMOLS
  7. VITAMIN D3 [Concomitant]
     Active Substance: CHOLECALCIFEROL
  8. GABAPENTIN [Concomitant]
     Active Substance: GABAPENTIN
  9. COTRIM [Concomitant]
     Active Substance: SULFAMETHOXAZOLE\TRIMETHOPRIM
     Dosage: 3X WEEKLY AS A PROPHYLAXIS

REACTIONS (24)
  - Palpitations [Recovered/Resolved]
  - Nausea [Recovered/Resolved]
  - Disturbance in attention [Recovering/Resolving]
  - Infection [Recovered/Resolved]
  - Pain in extremity [Recovered/Resolved]
  - Cystitis noninfective [Recovered/Resolved]
  - Depressed mood [Recovered/Resolved]
  - Headache [Recovered/Resolved]
  - Foot fracture [Not Recovered/Not Resolved]
  - Chills [Recovered/Resolved]
  - Immobile [Recovered/Resolved]
  - White blood cell count increased [Recovered/Resolved]
  - Vaccination failure [Recovering/Resolving]
  - Muscular weakness [Not Recovered/Not Resolved]
  - Fatigue [Recovered/Resolved]
  - Peroneal nerve palsy [Not Recovered/Not Resolved]
  - Chest pain [Recovered/Resolved]
  - Arthralgia [Recovered/Resolved]
  - Tachycardia [Recovered/Resolved]
  - Myocarditis [Recovered/Resolved]
  - Pleurisy [Recovered/Resolved]
  - Pyrexia [Recovered/Resolved]
  - Pneumonia fungal [Recovered/Resolved]
  - Alopecia [Recovered/Resolved]

NARRATIVE: CASE EVENT DATE: 20210318
